FAERS Safety Report 18685455 (Version 1)
Quarter: 2020Q4

REPORT INFORMATION
  Report Type: Spontaneous
  Country: GB (occurrence: GB)
  Receive Date: 20201231
  Receipt Date: 20201231
  Transmission Date: 20210114
  Serious: Yes (Other)
  Sender: FDA-Public Use
  Company Number: GB-TEVA-2020-GB-1863845

PATIENT
  Age: 38 Year
  Sex: Female

DRUGS (5)
  1. EUMOVATE [Suspect]
     Active Substance: CLOBETASONE BUTYRATE
     Indication: ECZEMA
     Dosage: SMALL AMOUNTS
     Route: 061
     Dates: start: 20120101
  2. DIPROBASE [Concomitant]
     Active Substance: CHLOROCRESOL
  3. CITALOPRAM [Concomitant]
     Active Substance: CITALOPRAM HYDROBROMIDE
  4. BETNOVATE [Suspect]
     Active Substance: BETAMETHASONE
     Indication: ECZEMA
     Dosage: 3 DOSAGE FORMS ,APPLY DILUTED MIXTURE INCLUDING ON FACE THEN TAPER DOWN TO A REGULAR MAINTENANCE DOS
     Route: 061
     Dates: start: 20180601, end: 20200401
  5. HYDROCORTISONE CREAM [Suspect]
     Active Substance: HYDROCORTISONE
     Indication: ECZEMA
     Route: 061
     Dates: start: 19870101, end: 20201101

REACTIONS (9)
  - Skin fissures [Unknown]
  - Alopecia [Not Recovered/Not Resolved]
  - Dry skin [Unknown]
  - Steroid withdrawal syndrome [Unknown]
  - Product administration error [Unknown]
  - Erythema [Not Recovered/Not Resolved]
  - Skin burning sensation [Not Recovered/Not Resolved]
  - Pain of skin [Not Recovered/Not Resolved]
  - Photosensitivity reaction [Not Recovered/Not Resolved]

NARRATIVE: CASE EVENT DATE: 20200401
